FAERS Safety Report 18465843 (Version 3)
Quarter: 2021Q2

REPORT INFORMATION
  Report Type: Report from Study
  Country: US (occurrence: US)
  Receive Date: 20201105
  Receipt Date: 20210422
  Transmission Date: 20210717
  Serious: Yes (Other)
  Sender: FDA-Public Use
  Company Number: US-TAIHO ONCOLOGY  INC-EU-2020-03450

PATIENT
  Age: 49 Year
  Sex: Female
  Weight: 50.34 kg

DRUGS (1)
  1. LONSURF [Suspect]
     Active Substance: TIPIRACIL HYDROCHLORIDE\TRIFLURIDINE
     Indication: COLON CANCER
     Dosage: CYCLE 4
     Route: 048
     Dates: start: 20200610

REACTIONS (10)
  - White blood cell count decreased [Unknown]
  - Dry mouth [Unknown]
  - Constipation [Not Recovered/Not Resolved]
  - Fatigue [Unknown]
  - Nausea [Unknown]
  - Lung disorder [Unknown]
  - Vomiting [Unknown]
  - Dental caries [Unknown]
  - Red blood cell count abnormal [Unknown]
  - Disease progression [Unknown]
